FAERS Safety Report 4702899-8 (Version None)
Quarter: 2005Q2

REPORT INFORMATION
  Report Type: 
  Country: None (occurrence: None)
  Receive Date: 20050629
  Receipt Date: 20050616
  Transmission Date: 20051028
  Serious: Yes (Death)
  Sender: FDA-Public Use
  Company Number: FR-JNJFOC-20050605251

PATIENT
  Sex: Female

DRUGS (4)
  1. EPITOMAX [Suspect]
     Indication: EPILEPSY
  2. TEGRETOL [Concomitant]
  3. LAMICTAL [Concomitant]
  4. PHENYTOIN [Concomitant]

REACTIONS (3)
  - DRUG EXPOSURE DURING PREGNANCY [None]
  - INTRA-UTERINE DEATH [None]
  - PROCEDURAL COMPLICATION [None]
